FAERS Safety Report 5059864-3 (Version None)
Quarter: 2006Q3

REPORT INFORMATION
  Report Type: 
  Country: None (occurrence: None)
  Receive Date: 20060724
  Receipt Date: 20060710
  Transmission Date: 20061208
  Serious: Yes (Hospitalization)
  Sender: FDA-Public Use
  Company Number: 2006CG01187

PATIENT
  Age: 0 Day
  Sex: Male
  Weight: 3.3 kg

DRUGS (5)
  1. TENORMIN [Suspect]
     Route: 064
     Dates: start: 20050101, end: 20051101
  2. IMUREL [Concomitant]
     Route: 064
     Dates: end: 20060314
  3. SOLUPRED [Concomitant]
     Route: 064
     Dates: end: 20060314
  4. NEORAL [Concomitant]
     Route: 064
     Dates: end: 20060314
  5. TRANDATE [Concomitant]
     Route: 064
     Dates: start: 20051101, end: 20060314

REACTIONS (4)
  - BRADYCARDIA NEONATAL [None]
  - CONGENITAL HYDRONEPHROSIS [None]
  - DRUG EXPOSURE DURING PREGNANCY [None]
  - NEONATAL RESPIRATORY DEPRESSION [None]
